FAERS Safety Report 17429373 (Version 2)
Quarter: 2020Q2

REPORT INFORMATION
  Report Type: Spontaneous
  Country: FR (occurrence: FR)
  Receive Date: 20200218
  Receipt Date: 20200518
  Transmission Date: 20200713
  Serious: Yes (Life-Threatening, Other)
  Sender: FDA-Public Use
  Company Number: FR-LEO PHARMA-328108

PATIENT
  Age: 64 Year
  Sex: Male

DRUGS (5)
  1. PICATO [Suspect]
     Active Substance: INGENOL MEBUTATE
     Indication: ACTINIC KERATOSIS
     Dosage: 150 MCG/G
     Route: 061
     Dates: start: 201805, end: 201805
  2. PICATO [Suspect]
     Active Substance: INGENOL MEBUTATE
     Dosage: 150 MCG/G
     Route: 061
     Dates: start: 201810
  3. PICATO [Suspect]
     Active Substance: INGENOL MEBUTATE
     Dosage: 150 MCG/G
     Route: 061
     Dates: start: 201903
  4. BISOCE GE [Concomitant]
     Indication: HYPERTENSION
     Dates: start: 201906
  5. ALOPURINOL [Concomitant]
     Active Substance: ALLOPURINOL
     Indication: HYPERURICAEMIA
     Dates: start: 2017

REACTIONS (1)
  - Squamous cell carcinoma of skin [Not Recovered/Not Resolved]

NARRATIVE: CASE EVENT DATE: 2019
